FAERS Safety Report 9557060 (Version 2)
Quarter: 2013Q4

REPORT INFORMATION
  Report Type: Report from Study
  Country: US (occurrence: US)
  Receive Date: 20130926
  Receipt Date: 20131008
  Transmission Date: 20140711
  Serious: Yes (Hospitalization, Other)
  Sender: FDA-Public Use
  Company Number: US-JNJFOC-20130909336

PATIENT
  Sex: Female
  Weight: 65.77 kg

DRUGS (16)
  1. REMICADE [Suspect]
     Indication: COLITIS ULCERATIVE
     Dosage: ONCE EVERY 6 TO 8 WEEKS
     Route: 042
     Dates: start: 20121228
  2. REMICADE [Suspect]
     Indication: COLITIS ULCERATIVE
     Dosage: ONCE EVERY 6 TO 8 WEEKS
     Route: 042
     Dates: start: 201006
  3. REMICADE [Suspect]
     Indication: COLITIS ULCERATIVE
     Dosage: ONCE EVERY 6 TO 8 WEEKS
     Route: 042
     Dates: start: 200811
  4. STEROIDS NOS [Suspect]
     Indication: COLITIS ULCERATIVE
     Dosage: STRENGTH 5 MG
     Route: 048
  5. BYSTOLIC [Concomitant]
     Indication: BLOOD PRESSURE
     Route: 048
     Dates: start: 2008
  6. BYSTOLIC [Concomitant]
     Indication: TACHYCARDIA
     Route: 048
     Dates: start: 2008
  7. MIACALCIN [Concomitant]
     Indication: OSTEOPOROSIS
     Dosage: DOSE: 1 SPRAY, SINCE 2009 OR 2010.
     Route: 045
  8. PROTONIX [Concomitant]
     Route: 048
     Dates: start: 2011
  9. ZOLOFT [Concomitant]
     Indication: ANXIETY
     Route: 048
     Dates: start: 200811
  10. CALCIUM [Concomitant]
     Indication: OSTEOPOROSIS
     Route: 048
     Dates: start: 2002
  11. VITAMIN D [Concomitant]
     Indication: OSTEOPOROSIS
     Route: 048
     Dates: start: 2007
  12. CENTRUM SELECT 50+ [Concomitant]
     Route: 048
     Dates: start: 2007
  13. ZANTAC [Concomitant]
     Indication: OESOPHAGITIS
     Dosage: SINCE 2010 OR 2011
     Route: 048
  14. LIPITOR [Concomitant]
     Indication: BLOOD CHOLESTEROL
     Route: 048
     Dates: start: 2008
  15. ESTRADIOL [Concomitant]
     Indication: HYSTERECTOMY
     Route: 048
     Dates: start: 2010
  16. LIBRAX [Concomitant]
     Indication: COLITIS ULCERATIVE
     Route: 048
     Dates: start: 2008

REACTIONS (10)
  - Colitis ulcerative [Unknown]
  - Haemoglobin decreased [Unknown]
  - Mycobacterium abscessus infection [Unknown]
  - Sensory disturbance [Unknown]
  - Surgery [Unknown]
  - Cushingoid [Not Recovered/Not Resolved]
  - Central obesity [Not Recovered/Not Resolved]
  - Cachexia [Not Recovered/Not Resolved]
  - Hysterectomy [Unknown]
  - Abnormal weight gain [Not Recovered/Not Resolved]
